FAERS Safety Report 10446384 (Version 1)
Quarter: 2014Q3

REPORT INFORMATION
  Report Type: Spontaneous
  Country: FR (occurrence: FR)
  Receive Date: 20140911
  Receipt Date: 20140911
  Transmission Date: 20150326
  Serious: Yes (Other)
  Sender: FDA-Public Use
  Company Number: FR-009507513-1409FRA002249

PATIENT
  Age: 82 Year
  Sex: Female

DRUGS (4)
  1. CANCIDAS [Suspect]
     Active Substance: CASPOFUNGIN ACETATE
     Dosage: UNK
     Route: 042
     Dates: start: 20140813, end: 20140818
  2. RIFADIN [Suspect]
     Active Substance: RIFAMPIN
     Indication: DEVICE RELATED INFECTION
     Dosage: BID, DAILY DOSE 400MG
     Route: 042
     Dates: start: 20140730, end: 20140818
  3. CLINDAMYCIN [Suspect]
     Active Substance: CLINDAMYCIN\CLINDAMYCIN PHOSPHATE
     Dosage: BID; 1200MG DAILY
     Route: 042
     Dates: start: 20140730, end: 20140817
  4. ACUPAN [Suspect]
     Active Substance: NEFOPAM HYDROCHLORIDE
     Dosage: UNK
     Route: 042
     Dates: start: 20140730

REACTIONS (1)
  - Acute generalised exanthematous pustulosis [Not Recovered/Not Resolved]

NARRATIVE: CASE EVENT DATE: 20140816
